FAERS Safety Report 7137817-9 (Version None)
Quarter: 2010Q4

REPORT INFORMATION
  Report Type: 
  Country: None (occurrence: None)
  Receive Date: 20101206
  Receipt Date: 20101122
  Transmission Date: 20110411
  Serious: Yes (Other)
  Sender: FDA-Public Use
  Company Number: PHHY2010MX80043

PATIENT
  Age: 73 Year
  Sex: Female

DRUGS (5)
  1. DIOVAN [Suspect]
     Indication: HYPERTENSION
     Dosage: 1 TABLET (160 MG) PER DAY
     Dates: end: 20101001
  2. DIOVAN [Suspect]
     Dosage: 80 MG PER DAY
     Dates: end: 20100101
  3. LASIX [Concomitant]
     Indication: FLUID RETENTION
     Dosage: 1 TABLET, UNK
  4. LANTUS [Concomitant]
     Dosage: 40 IU, UNK
  5. TYLEX [Concomitant]
     Indication: PAIN
     Dosage: 3 TABLETS, DAILY

REACTIONS (4)
  - BLOOD PRESSURE DIASTOLIC DECREASED [None]
  - BRAIN HYPOXIA [None]
  - FLUID RETENTION [None]
  - VOMITING [None]
